FAERS Safety Report 7969340-3 (Version None)
Quarter: 2011Q4

REPORT INFORMATION
  Report Type: 
  Country: None (occurrence: None)
  Receive Date: 20111209
  Receipt Date: 20111130
  Transmission Date: 20120403
  Serious: Yes (Hospitalization)
  Sender: FDA-Public Use
  Company Number: US-ASTRAZENECA-2011SE73147

PATIENT
  Sex: Female

DRUGS (3)
  1. TOPROL-XL [Suspect]
     Route: 048
  2. SEROQUEL [Suspect]
     Route: 048
  3. SHOTS FOR DIABETES [Concomitant]
     Indication: DIABETES MELLITUS

REACTIONS (2)
  - CHEST PAIN [None]
  - HYPERTENSION [None]
